FAERS Safety Report 6893488-8 (Version None)
Quarter: 2010Q3

REPORT INFORMATION
  Report Type: 
  Country: None (occurrence: None)
  Receive Date: 20100731
  Receipt Date: 20090923
  Transmission Date: 20110219
  Serious: No
  Sender: FDA-Public Use
  Company Number: US-PFIZER INC-2009248223

PATIENT
  Sex: Male
  Weight: 122 kg

DRUGS (9)
  1. LIPITOR [Suspect]
     Indication: BLOOD CHOLESTEROL ABNORMAL
     Dosage: UNK
     Dates: start: 20080101, end: 20090701
  2. PRINIVIL [Concomitant]
     Dosage: UNK
  3. CASODEX [Concomitant]
     Dosage: UNK
  4. CALCIUM TABLETS [Concomitant]
     Dosage: UNK
  5. DYAZIDE [Concomitant]
     Dosage: UNK
  6. XALATAN [Concomitant]
     Dosage: UNK
  7. AVALIDE [Concomitant]
     Dosage: UNK
  8. TAMSULOSIN HYDROCHLORIDE [Concomitant]
     Dosage: UNK
  9. MICRONASE [Concomitant]
     Dosage: UNK

REACTIONS (2)
  - AMNESIA [None]
  - CONFUSIONAL STATE [None]
